FAERS Safety Report 14801308 (Version 2)
Quarter: 2018Q2

REPORT INFORMATION
  Report Type: Report from Study
  Country: DE (occurrence: DE)
  Receive Date: 20180424
  Receipt Date: 20180511
  Transmission Date: 20180711
  Serious: Yes (Life-Threatening, Hospitalization, Other)
  Sender: FDA-Public Use
  Company Number: DE-UCBSA-2018018074

PATIENT
  Age: 22 Year
  Sex: Male

DRUGS (1)
  1. CERTOLIZUMAB PEGOL [Suspect]
     Active Substance: CERTOLIZUMAB PEGOL
     Indication: PSORIATIC ARTHROPATHY
     Dosage: 200 MG
     Route: 058
     Dates: start: 201802, end: 20180312

REACTIONS (1)
  - Testis cancer [Not Recovered/Not Resolved]

NARRATIVE: CASE EVENT DATE: 20180326
